FAERS Safety Report 8544500-1 (Version None)
Quarter: 2012Q3

REPORT INFORMATION
  Report Type: 
  Country: None (occurrence: None)
  Receive Date: 20120727
  Receipt Date: 20120719
  Transmission Date: 20120928
  Serious: Yes (Other)
  Sender: FDA-Public Use
  Company Number: US-BAXTER-2012BAX012647

PATIENT

DRUGS (1)
  1. GAMMAGARD LIQUID [Suspect]
     Indication: OPSOCLONUS MYOCLONUS
     Dosage: 1 G/KG
     Route: 042

REACTIONS (1)
  - DISEASE PROGRESSION [None]
